FAERS Safety Report 15046576 (Version 2)
Quarter: 2018Q3

REPORT INFORMATION
  Report Type: Report from Study
  Country: US (occurrence: US)
  Receive Date: 20180621
  Receipt Date: 20180725
  Transmission Date: 20181010
  Serious: Yes (Hospitalization, Other)
  Sender: FDA-Public Use
  Company Number: US-PFIZER INC-2018194791

PATIENT
  Age: 80 Year
  Sex: Female

DRUGS (3)
  1. IBRANCE [Suspect]
     Active Substance: PALBOCICLIB
     Dosage: 75 MG, 1X/DAY
     Route: 048
     Dates: start: 20180420
  2. IBRANCE [Suspect]
     Active Substance: PALBOCICLIB
     Dosage: 75 MG, 1X/DAY
     Route: 048
     Dates: start: 20180612
  3. IBRANCE [Suspect]
     Active Substance: PALBOCICLIB
     Indication: BREAST CANCER METASTATIC
     Dosage: 100 MG, 1X/DAY
     Route: 048
     Dates: start: 20180420, end: 20180505

REACTIONS (10)
  - Urinary tract infection [Unknown]
  - Decreased appetite [Not Recovered/Not Resolved]
  - Constipation [Recovered/Resolved]
  - Full blood count decreased [Unknown]
  - Vomiting [Not Recovered/Not Resolved]
  - Fatigue [Unknown]
  - Haematemesis [Unknown]
  - Nausea [Not Recovered/Not Resolved]
  - Thrombocytopenia [Not Recovered/Not Resolved]
  - Asthenia [Not Recovered/Not Resolved]

NARRATIVE: CASE EVENT DATE: 2018
